FAERS Safety Report 6818736-1 (Version None)
Quarter: 2010Q2

REPORT INFORMATION
  Report Type: 
  Country: None (occurrence: None)
  Receive Date: 20100630
  Receipt Date: 20100615
  Transmission Date: 20101027
  Serious: Yes (Other)
  Sender: FDA-Public Use
  Company Number: APP201000535

PATIENT
  Age: 56 Year
  Sex: Male
  Weight: 72.4 kg

DRUGS (2)
  1. MANNITOL [Suspect]
     Indication: ABNORMAL SENSATION IN EYE
  2. ACETAZOLAMIDE [Suspect]
     Indication: ABNORMAL SENSATION IN EYE

REACTIONS (2)
  - ACIDOSIS [None]
  - RENAL FAILURE ACUTE [None]
